FAERS Safety Report 12652904 (Version 1)
Quarter: 2016Q3

REPORT INFORMATION
  Report Type: Spontaneous
  Country: US (occurrence: US)
  Receive Date: 20160815
  Receipt Date: 20160815
  Transmission Date: 20161109
  Serious: Yes (Other)
  Sender: FDA-Public Use
  Company Number: US-SA-2016SA144894

PATIENT
  Age: 21 Year
  Sex: Female

DRUGS (1)
  1. LOVENOX [Suspect]
     Active Substance: ENOXAPARIN SODIUM
     Indication: THROMBOSIS
     Route: 065
     Dates: start: 201504

REACTIONS (4)
  - Sepsis [Unknown]
  - Thyroid disorder [Unknown]
  - Platelet count decreased [Unknown]
  - Haematoma [Unknown]
